FAERS Safety Report 23961387 (Version 1)
Quarter: 2024Q2

REPORT INFORMATION
  Report Type: Spontaneous
  Country: US (occurrence: US)
  Receive Date: 20240611
  Receipt Date: 20240611
  Transmission Date: 20240716
  Serious: Yes (Other)
  Sender: FDA-Public Use
  Company Number: US-MALLINCKRODT-MNK202403643

PATIENT
  Age: 63 Year
  Sex: Female

DRUGS (6)
  1. CORTICOTROPIN [Suspect]
     Active Substance: CORTICOTROPIN
     Indication: Illness
     Dosage: 80 UNITS
     Route: 058
  2. CELLCEPT [Concomitant]
     Active Substance: MYCOPHENOLATE MOFETIL
     Dosage: UNKNOWN
  3. CULTURELLE [Concomitant]
     Active Substance: LACTOBACILLUS RHAMNOSUS
     Dosage: UNKNOWN (10B CELL)
  4. PREDNISOLONE [Concomitant]
     Active Substance: PREDNISOLONE
     Dosage: UNKNOWN
  5. BACTRIM [Concomitant]
     Active Substance: SULFAMETHOXAZOLE\TRIMETHOPRIM
     Dosage: UNKNOWN (400MG-80MG)
  6. LETROZOLE [Concomitant]
     Active Substance: LETROZOLE
     Dosage: UNKNOWN

REACTIONS (7)
  - Neoplasm malignant [Recovered/Resolved]
  - Cellulitis orbital [Unknown]
  - Blepharitis [Unknown]
  - Cushing^s syndrome [Unknown]
  - Dizziness [Unknown]
  - Headache [Unknown]
  - Weight increased [Not Recovered/Not Resolved]

NARRATIVE: CASE EVENT DATE: 20240506
